FAERS Safety Report 6590572-3 (Version None)
Quarter: 2010Q1

REPORT INFORMATION
  Report Type: 
  Country: None (occurrence: None)
  Receive Date: 20100219
  Receipt Date: 20100212
  Transmission Date: 20100710
  Serious: Yes (Hospitalization, Other)
  Sender: FDA-Public Use
  Company Number: HQWYE781503AUG04

PATIENT
  Sex: Female
  Weight: 68.1 kg

DRUGS (4)
  1. PREMPRO [Suspect]
  2. ESTRATEST [Suspect]
  3. PREMARIN [Suspect]
  4. PROVERA [Suspect]

REACTIONS (1)
  - BREAST CANCER METASTATIC [None]
